FAERS Safety Report 7176938-1 (Version None)
Quarter: 2010Q4

REPORT INFORMATION
  Report Type: 
  Country: None (occurrence: None)
  Receive Date: 20101207
  Receipt Date: 20101123
  Transmission Date: 20110411
  Serious: Yes (Hospitalization)
  Sender: FDA-Public Use
  Company Number: 020332

PATIENT
  Sex: Female

DRUGS (3)
  1. CIMZIA [Suspect]
     Indication: CROHN'S DISEASE
     Dosage: (400 MG 1X/4 WEEKS SUBCUTANEOUS)
     Route: 058
     Dates: start: 20100715
  2. IMURAN [Concomitant]
  3. MESALAMINE [Concomitant]

REACTIONS (3)
  - CONDITION AGGRAVATED [None]
  - NASOPHARYNGITIS [None]
  - SMALL INTESTINAL OBSTRUCTION [None]
